FAERS Safety Report 6163018-7 (Version None)
Quarter: 2009Q2

REPORT INFORMATION
  Report Type: 
  Country: None (occurrence: None)
  Receive Date: 20090420
  Receipt Date: 20090402
  Transmission Date: 20091009
  Serious: Yes (Other)
  Sender: FDA-Public Use
  Company Number: ADE# 09-009DPR

PATIENT
  Age: 69 Year
  Sex: Male
  Weight: 102.5129 kg

DRUGS (2)
  1. DIGOXIN [Suspect]
     Indication: CARDIAC DISORDER
     Dosage: ONE TABLET DAILY
  2. COUMADIN [Concomitant]

REACTIONS (1)
  - HEART RATE INCREASED [None]
